FAERS Safety Report 4894315-0 (Version None)
Quarter: 2006Q1

REPORT INFORMATION
  Report Type: 
  Country: None (occurrence: None)
  Receive Date: 20060127
  Receipt Date: 20041230
  Transmission Date: 20060701
  Serious: Yes (Hospitalization, Disabling, Other)
  Sender: FDA-Public Use
  Company Number: US-MERCK-0501USA00018

PATIENT
  Age: 58 Year
  Sex: Male
  Weight: 141 kg

DRUGS (2)
  1. VIOXX [Suspect]
     Indication: OSTEOARTHRITIS
     Route: 048
     Dates: start: 20000101, end: 20040101
  2. [THERAPY UNSPECIFIED] [Concomitant]
     Route: 048

REACTIONS (35)
  - ABDOMINAL PAIN [None]
  - ACCELERATED HYPERTENSION [None]
  - ALCOHOL WITHDRAWAL SYNDROME [None]
  - AORTIC ARTERIOSCLEROSIS [None]
  - AORTIC VALVE STENOSIS [None]
  - ATRIOVENTRICULAR BLOCK FIRST DEGREE [None]
  - CARDIAC MURMUR [None]
  - CAROTID BRUIT [None]
  - CELLULITIS [None]
  - CEREBROVASCULAR ACCIDENT [None]
  - COLON CANCER METASTATIC [None]
  - CONSTIPATION [None]
  - DIVERTICULUM [None]
  - DIVERTICULUM INTESTINAL [None]
  - DYSARTHRIA [None]
  - DYSPEPSIA [None]
  - FACIAL PALSY [None]
  - FACIAL PARESIS [None]
  - GASTRITIS [None]
  - GASTROOESOPHAGEAL REFLUX DISEASE [None]
  - HEPATOMEGALY [None]
  - HIATUS HERNIA [None]
  - HOMANS' SIGN [None]
  - INFLAMMATION [None]
  - INTESTINAL OBSTRUCTION [None]
  - MALAISE [None]
  - METASTASES TO LYMPH NODES [None]
  - OESOPHAGITIS ULCERATIVE [None]
  - OSTEOARTHRITIS [None]
  - PROSTATIC MASS [None]
  - SOMNOLENCE [None]
  - THROMBOPHLEBITIS [None]
  - TRICUSPID VALVE INCOMPETENCE [None]
  - VENTRICULAR HYPERTROPHY [None]
  - WOUND SECRETION [None]
